FAERS Safety Report 25810280 (Version 2)
Quarter: 2025Q4

REPORT INFORMATION
  Report Type: Spontaneous
  Country: US (occurrence: US)
  Receive Date: 20250917
  Receipt Date: 20251218
  Transmission Date: 20260118
  Serious: Yes (Other)
  Sender: Thea Pharma
  Company Number: US-THEA-2025002284

PATIENT
  Sex: Female

DRUGS (1)
  1. POVIDONE [Suspect]
     Active Substance: POVIDONE
     Indication: Product used for unknown indication
     Route: 047

REACTIONS (1)
  - Pseudomonas infection [Unknown]
